FAERS Safety Report 15389573 (Version 2)
Quarter: 2018Q4

REPORT INFORMATION
  Report Type: Spontaneous
  Country: IN (occurrence: IN)
  Receive Date: 20180917
  Receipt Date: 20180917
  Transmission Date: 20190204
  Serious: No
  Sender: FDA-Public Use
  Company Number: IN-LUPIN PHARMACEUTICALS INC.-2017-06888

PATIENT

DRUGS (2)
  1. CETIL TABS 500 MG (CEFUROXIME AXETIL) [Suspect]
     Active Substance: CEFUROXIME AXETIL
     Indication: WOUND INFECTION
     Dosage: 1 DF, BID
     Route: 048
     Dates: start: 20171122
  2. SWICH CV [Concomitant]
     Indication: WOUND INFECTION
     Dosage: UNK
     Route: 065
     Dates: start: 201711

REACTIONS (2)
  - Burning sensation [Not Recovered/Not Resolved]
  - Ocular hyperaemia [Not Recovered/Not Resolved]

NARRATIVE: CASE EVENT DATE: 20171123
